FAERS Safety Report 5511848-4 (Version None)
Quarter: 2007Q4

REPORT INFORMATION
  Report Type: 
  Country: None (occurrence: None)
  Receive Date: 20071109
  Receipt Date: 20071105
  Transmission Date: 20080405
  Serious: Yes (Hospitalization, Other)
  Sender: FDA-Public Use
  Company Number: GB-BOEHRINGER INGELHEIM PHARMACEUTICALS, INC.-2007-DE-06583GD

PATIENT
  Sex: Male

DRUGS (4)
  1. TIOTROPIUM-BROMIDE [Suspect]
     Indication: CHRONIC OBSTRUCTIVE PULMONARY DISEASE
     Route: 055
     Dates: start: 20031205
  2. ADIRO [Concomitant]
  3. OMEPRAZOLE [Concomitant]
  4. ORFIDAL [Concomitant]

REACTIONS (2)
  - BLADDER CANCER [None]
  - BREAST CANCER [None]
